FAERS Safety Report 7999571-8 (Version None)
Quarter: 2011Q4

REPORT INFORMATION
  Report Type: 
  Country: None (occurrence: None)
  Receive Date: 20111221
  Receipt Date: 20111212
  Transmission Date: 20120403
  Serious: Yes (Hospitalization, Other)
  Sender: FDA-Public Use
  Company Number: US-PFIZER INC-2011225307

PATIENT
  Sex: Male
  Weight: 107.2 kg

DRUGS (4)
  1. CELEBREX [Suspect]
     Indication: NECK PAIN
     Dosage: 200 MG, AS NEEDED
     Route: 048
  2. LYRICA [Concomitant]
     Indication: PAIN
     Dosage: 75 MG, AS NEEDED
     Route: 048
  3. NAPROSYN [Suspect]
     Indication: NECK PAIN
     Dosage: 500 MG, AS NEEDED
     Route: 048
  4. NEURONTIN [Concomitant]
     Indication: PAIN
     Dosage: 400 MG, AS NEEDED
     Route: 048

REACTIONS (3)
  - SYNCOPE [None]
  - ANAEMIA [None]
  - GASTROINTESTINAL HAEMORRHAGE [None]
